FAERS Safety Report 5658228-9 (Version None)
Quarter: 2008Q1

REPORT INFORMATION
  Report Type: 
  Country: None (occurrence: None)
  Receive Date: 20080310
  Receipt Date: 20070305
  Transmission Date: 20080703
  Serious: No
  Sender: FDA-Public Use
  Company Number: US-BAYER-200710203BCC

PATIENT
  Age: 94 Year
  Sex: Female
  Weight: 59 kg

DRUGS (5)
  1. ALEVE [Suspect]
     Indication: JOINT SWELLING
     Dosage: TOTAL DAILY DOSE: 440 MG  UNIT DOSE: 220 MG
     Route: 048
     Dates: start: 20070117
  2. TOPROL [Concomitant]
  3. GLUCOPHAGE [Concomitant]
  4. PRAVACHOL [Concomitant]
  5. ATIVAN [Concomitant]

REACTIONS (1)
  - THROAT TIGHTNESS [None]
